FAERS Safety Report 8819869 (Version 2)
Quarter: 2012Q4

REPORT INFORMATION
  Report Type: 
  Country: US (occurrence: US)
  Receive Date: 20121001
  Receipt Date: 20121211
  Transmission Date: 20130627
  Serious: Yes (Hospitalization)
  Sender: FDA-Public Use
  Company Number: US-ALEXION-A201201807

PATIENT
  Sex: Female

DRUGS (1)
  1. SOLIRIS 300MG [Suspect]
     Indication: PAROXYSMAL NOCTURNAL HAEMOGLOBINURIA
     Dosage: UNK
     Route: 042

REACTIONS (5)
  - Nephrolithiasis [Recovering/Resolving]
  - Heart rate decreased [Unknown]
  - Procedural complication [Recovered/Resolved]
  - Pain [Recovering/Resolving]
  - Myalgia [Recovering/Resolving]
